FAERS Safety Report 5588728-1 (Version None)
Quarter: 2008Q1

REPORT INFORMATION
  Report Type: 
  Country: None (occurrence: None)
  Receive Date: 20080111
  Receipt Date: 20080103
  Transmission Date: 20080703
  Serious: Yes (Other)
  Sender: FDA-Public Use
  Company Number: B0360544A

PATIENT
  Sex: Male

DRUGS (1)
  1. PAROXETINE HYDROCHLORIDE [Suspect]
     Dosage: 20MG UNKNOWN
     Route: 065
     Dates: start: 19970801

REACTIONS (10)
  - ANXIETY [None]
  - APATHY [None]
  - BRADYPHRENIA [None]
  - COMMUNICATION DISORDER [None]
  - DISTURBANCE IN ATTENTION [None]
  - DRUG WITHDRAWAL SYNDROME [None]
  - HYPERHIDROSIS [None]
  - IRRITABILITY [None]
  - MUSCLE TIGHTNESS [None]
  - SUICIDAL IDEATION [None]
